FAERS Safety Report 4371628-2 (Version None)
Quarter: 2004Q2

REPORT INFORMATION
  Report Type: 
  Country: None (occurrence: None)
  Receive Date: 20040601
  Receipt Date: 20040514
  Transmission Date: 20050107
  Serious: Yes (Death, Hospitalization)
  Sender: FDA-Public Use
  Company Number: 200403172

PATIENT
  Age: 47 Year
  Sex: Female

DRUGS (2)
  1. BOTOX COSMETIC [Suspect]
     Indication: SKIN WRINKLING
     Dosage: 50 UNITS PRN IM
     Route: 030
     Dates: end: 20031208
  2. ANAFRANIL [Concomitant]

REACTIONS (7)
  - FEELING ABNORMAL [None]
  - INFLUENZA LIKE ILLNESS [None]
  - PNEUMONIA [None]
  - PNEUMONIA STAPHYLOCOCCAL [None]
  - RESPIRATORY FAILURE [None]
  - SEPSIS [None]
  - SWELLING [None]
